FAERS Safety Report 23457639 (Version 2)
Quarter: 2024Q1

REPORT INFORMATION
  Report Type: Spontaneous
  Country: US (occurrence: US)
  Receive Date: 20240130
  Receipt Date: 20240130
  Transmission Date: 20240410
  Serious: No
  Sender: FDA-Public Use
  Company Number: US-GALDERMA-US2023002161

PATIENT

DRUGS (2)
  1. IVERMECTIN [Suspect]
     Active Substance: IVERMECTIN
     Indication: Rosacea
     Dosage: 1 DOSAGE FORM, CREAM 1%, BID, TWICE DAILY
     Route: 061
  2. COSMETICS [Suspect]
     Active Substance: COSMETICS
     Indication: Product used for unknown indication
     Dosage: 1 DOSAGE FORM
     Route: 061
     Dates: start: 202302

REACTIONS (6)
  - Erythema [Recovering/Resolving]
  - Flushing [Not Recovered/Not Resolved]
  - Acne cystic [Not Recovered/Not Resolved]
  - Drug ineffective [Not Recovered/Not Resolved]
  - Inappropriate schedule of product administration [Recovered/Resolved]
  - Overdose [Recovered/Resolved]
